FAERS Safety Report 13900556 (Version 1)
Quarter: 2017Q3

REPORT INFORMATION
  Report Type: Report from Study
  Country: None (occurrence: US)
  Receive Date: 20170823
  Receipt Date: 20170823
  Transmission Date: 20171127
  Serious: Yes (Other)
  Sender: FDA-Public Use
  Company Number: US-ABBVIE-17P-163-2073858-00

PATIENT
  Sex: Female

DRUGS (3)
  1. REYATAZ [Suspect]
     Active Substance: ATAZANAVIR SULFATE
     Indication: MATERNAL EXPOSURE TIMING UNSPECIFIED
     Route: 064
  2. TRUVADA [Suspect]
     Active Substance: EMTRICITABINE\TENOFOVIR DISOPROXIL FUMARATE
     Indication: MATERNAL EXPOSURE TIMING UNSPECIFIED
     Route: 064
  3. NORVIR [Suspect]
     Active Substance: RITONAVIR
     Indication: MATERNAL EXPOSURE TIMING UNSPECIFIED
     Route: 064

REACTIONS (6)
  - Congenital anomaly of adrenal gland [Recovered/Resolved]
  - Diaphragmatic hernia [Recovered/Resolved]
  - Foetal exposure during pregnancy [Unknown]
  - Congenital intestinal malformation [Recovered/Resolved]
  - Polydactyly [Unknown]
  - Congenital renal disorder [Recovered/Resolved]

NARRATIVE: CASE EVENT DATE: 20151116
